FAERS Safety Report 9288818 (Version 1)
Quarter: 2013Q2

REPORT INFORMATION
  Report Type: Spontaneous
  Country: US (occurrence: US)
  Receive Date: 20130514
  Receipt Date: 20130514
  Transmission Date: 20140414
  Serious: Yes (Hospitalization)
  Sender: FDA-Public Use
  Company Number: US-BAYER-2013-057227

PATIENT
  Age: 42 Year
  Sex: Female

DRUGS (5)
  1. YAZ [Suspect]
  2. YASMIN [Suspect]
  3. CALAN SLOW RELEASE [Concomitant]
  4. HYDROCODONE [Concomitant]
  5. LORTAB [Concomitant]

REACTIONS (1)
  - Deep vein thrombosis [None]
